FAERS Safety Report 7860910-X (Version None)
Quarter: 2011Q4

REPORT INFORMATION
  Report Type: 
  Country: None (occurrence: None)
  Receive Date: 20111027
  Receipt Date: 20111020
  Transmission Date: 20120403
  Serious: Yes (Hospitalization)
  Sender: FDA-Public Use
  Company Number: PT-MERCK-1107PRT00010B1

PATIENT
  Age: 0 Day
  Sex: Male

DRUGS (5)
  1. ISENTRESS [Suspect]
     Indication: HIV INFECTION
     Route: 064
     Dates: start: 20110214
  2. DARUNAVIR [Concomitant]
     Route: 064
     Dates: start: 20110214
  3. EMTRICITABINE AND TENOFOVIR DISOPROXIL FUMARATE [Concomitant]
     Route: 064
  4. ZIDOVUDINE [Suspect]
     Route: 065
  5. RITONAVIR [Concomitant]
     Route: 064

REACTIONS (1)
  - PNEUMONIA [None]
